FAERS Safety Report 9202032 (Version 2)
Quarter: 2013Q4

REPORT INFORMATION
  Report Type: Spontaneous
  Country: US (occurrence: US)
  Receive Date: 20130401
  Receipt Date: 20131031
  Transmission Date: 20140711
  Serious: Yes (Hospitalization, Disabling, Other)
  Sender: FDA-Public Use
  Company Number: US-BAYER-2013-039509

PATIENT
  Age: 16 Year
  Sex: Female

DRUGS (10)
  1. YAZ [Suspect]
     Dosage: UNK
     Dates: start: 2007, end: 2009
  2. YASMIN [Suspect]
     Dosage: UNK
     Dates: start: 2007, end: 2009
  3. OCELLA [Suspect]
     Dosage: UNK
     Dates: start: 2007, end: 2009
  4. HYDROCODONE/ACETAMINOPHEN [Concomitant]
     Dosage: UNK
     Dates: start: 20110209
  5. RECLIPSEN [Concomitant]
     Dosage: UNK
     Dates: start: 20110202
  6. LOPID [Concomitant]
     Dosage: UNK
     Dates: start: 20110127
  7. ZYRTEC [Concomitant]
     Dosage: UNK
     Dates: start: 20110127
  8. RISPERIDONE [Concomitant]
     Dosage: UNK
     Dates: start: 20110127
  9. TRAZODONE [Concomitant]
  10. DOCQLACE [Concomitant]

REACTIONS (7)
  - Gallbladder disorder [None]
  - Cholecystitis chronic [None]
  - Injury [None]
  - Pain [None]
  - Deformity [None]
  - Anxiety [None]
  - Anhedonia [None]
